FAERS Safety Report 8006896-9 (Version None)
Quarter: 2011Q4

REPORT INFORMATION
  Report Type: 
  Country: None (occurrence: None)
  Receive Date: 20111227
  Receipt Date: 20111216
  Transmission Date: 20120403
  Serious: Yes (Other)
  Sender: FDA-Public Use
  Company Number: DE-JNJFOC-20111208644

PATIENT
  Age: 5 Decade
  Sex: Female

DRUGS (1)
  1. TOPAMAX [Suspect]
     Indication: EPILEPSY
     Route: 048

REACTIONS (3)
  - WEIGHT DECREASED [None]
  - DIARRHOEA [None]
  - GASTROENTERITIS ESCHERICHIA COLI [None]
